FAERS Safety Report 5904635-6 (Version None)
Quarter: 2008Q3

REPORT INFORMATION
  Report Type: 
  Country: None (occurrence: None)
  Receive Date: 20080909
  Receipt Date: 20071101
  Transmission Date: 20090109
  Serious: Yes (Death)
  Sender: FDA-Public Use
  Company Number: 163-20785-07101169

PATIENT
  Age: 55 Year
  Sex: Male

DRUGS (2)
  1. THALOMID [Suspect]
     Indication: BRAIN NEOPLASM MALIGNANT
     Dosage: 300 MG, DAILY, ORAL
     Route: 048
     Dates: start: 20030401, end: 20030601
  2. THALOMID [Suspect]

REACTIONS (1)
  - NEOPLASM PROGRESSION [None]
